FAERS Safety Report 23126752 (Version 2)
Quarter: 2023Q4

REPORT INFORMATION
  Report Type: Spontaneous
  Country: US (occurrence: US)
  Receive Date: 20231030
  Receipt Date: 20231115
  Transmission Date: 20240110
  Serious: No
  Sender: FDA-Public Use
  Company Number: US-PFIZER INC-202300340412

PATIENT
  Age: 67 Year
  Sex: Female

DRUGS (1)
  1. XELJANZ XR [Suspect]
     Active Substance: TOFACITINIB CITRATE
     Dosage: 11 MG, DAILY(1 TABLET EVERY DAY)
     Route: 048

REACTIONS (10)
  - Pain [Unknown]
  - Musculoskeletal stiffness [Unknown]
  - Joint range of motion decreased [Unknown]
  - Joint instability [Unknown]
  - Joint noise [Unknown]
  - Arthropathy [Unknown]
  - Deformity [Unknown]
  - Back pain [Unknown]
  - Arthralgia [Unknown]
  - Blood pressure abnormal [Unknown]
